FAERS Safety Report 5732011-8 (Version None)
Quarter: 2008Q2

REPORT INFORMATION
  Report Type: 
  Country: None (occurrence: None)
  Receive Date: 20080508
  Receipt Date: 20080502
  Transmission Date: 20081010
  Serious: Yes (Hospitalization)
  Sender: FDA-Public Use
  Company Number: US-ASTRAZENECA-2008UW09023

PATIENT
  Age: 28 Year
  Sex: Female

DRUGS (2)
  1. SEROQUEL [Suspect]
     Route: 048
  2. INDERAL [Suspect]

REACTIONS (4)
  - ABNORMAL BEHAVIOUR [None]
  - BLOOD PRESSURE DECREASED [None]
  - LETHARGY [None]
  - SYNCOPE [None]
